FAERS Safety Report 18992824 (Version 1)
Quarter: 2021Q1

REPORT INFORMATION
  Report Type: Report from Study
  Country: US (occurrence: US)
  Receive Date: 20210310
  Receipt Date: 20210310
  Transmission Date: 20210420
  Serious: Yes (Hospitalization)
  Sender: FDA-Public Use
  Company Number: US-GILEAD-2021-0519334

PATIENT
  Age: 10 Year
  Sex: Female

DRUGS (20)
  1. LAMOTRIGINE. [Concomitant]
     Active Substance: LAMOTRIGINE
  2. RANITIDINE. [Concomitant]
     Active Substance: RANITIDINE
  3. LEVALBUTEROL [LEVOSALBUTAMOL] [Concomitant]
     Active Substance: LEVALBUTEROL
  4. POLYETHYLENE GLYCOL [MACROGOL] [Concomitant]
     Active Substance: POLYETHYLENE GLYCOLS
  5. BUDESONIDE. [Concomitant]
     Active Substance: BUDESONIDE
  6. FLUTICASONE. [Concomitant]
     Active Substance: FLUTICASONE
  7. NITROFURANTOIN. [Concomitant]
     Active Substance: NITROFURANTOIN
  8. AZTREONAM LYSINE [Suspect]
     Active Substance: AZTREONAM LYSINE
     Indication: CYSTIC FIBROSIS
     Dosage: 1 VIAL VIA NEBULIZER TID FOR 28 DAYS ON, THEN 28 DAYS OFF
     Route: 055
     Dates: start: 20190118
  9. CETIRIZINE [Concomitant]
     Active Substance: CETIRIZINE HYDROCHLORIDE
  10. CIPROFLOXACIN. [Concomitant]
     Active Substance: CIPROFLOXACIN
  11. ONFI [Concomitant]
     Active Substance: CLOBAZAM
  12. TRIAMCINOLON [TRIAMCINOLONE] [Concomitant]
     Active Substance: TRIAMCINOLONE
  13. DIAZEPAM. [Concomitant]
     Active Substance: DIAZEPAM
  14. OXCARBAZEPINE. [Concomitant]
     Active Substance: OXCARBAZEPINE
  15. VIMPAT [Concomitant]
     Active Substance: LACOSAMIDE
  16. CEPHALEXIN [CEFALEXIN] [Concomitant]
     Active Substance: CEPHALEXIN
  17. CLOBAZAM. [Concomitant]
     Active Substance: CLOBAZAM
  18. FAMOTIDINE. [Concomitant]
     Active Substance: FAMOTIDINE
  19. MONTELUKAST [Concomitant]
     Active Substance: MONTELUKAST SODIUM
  20. SYNTHROID [Concomitant]
     Active Substance: LEVOTHYROXINE SODIUM

REACTIONS (2)
  - Product dose omission issue [Unknown]
  - Urinary tract infection [Unknown]

NARRATIVE: CASE EVENT DATE: 202101
